FAERS Safety Report 9341545 (Version 1)
Quarter: 2013Q2

REPORT INFORMATION
  Report Type: Spontaneous
  Country: US (occurrence: US)
  Receive Date: 20130611
  Receipt Date: 20130611
  Transmission Date: 20140414
  Serious: Yes (Other)
  Sender: FDA-Public Use
  Company Number: US-SUN PHARMACEUTICAL INDUSTRIES LTD-2013SUN00707

PATIENT
  Age: 53 Year
  Sex: Female

DRUGS (5)
  1. ANASTROZOLE TABLETS 1MG [Suspect]
     Indication: BREAST CANCER
     Dosage: UNK
     Route: 065
  2. ASPIRIN [Concomitant]
     Dosage: 81 MG, UNK
  3. VITAMIN D [Concomitant]
     Dosage: 3000 IU, UNK
  4. CALCIUM CITRATE [Concomitant]
     Dosage: 600 MG, QD
  5. NITROFURANTOIN [Concomitant]
     Dosage: UNK, PRN

REACTIONS (2)
  - Lichen sclerosus [Recovering/Resolving]
  - Lichen sclerosus [None]
